FAERS Safety Report 9696525 (Version 1)
Quarter: 2013Q4

REPORT INFORMATION
  Report Type: Report from Study
  Country: US (occurrence: US)
  Receive Date: 20131119
  Receipt Date: 20131119
  Transmission Date: 20140711
  Serious: Yes (Death)
  Sender: FDA-Public Use
  Company Number: US-ABBVIE-13P-163-1169785-00

PATIENT
  Age: 85 Year
  Sex: Male
  Weight: 59.02 kg

DRUGS (1)
  1. LUPRON DEPOT [Suspect]
     Indication: PROSTATE CANCER
     Route: 050
     Dates: start: 20120615, end: 2013

REACTIONS (4)
  - Respiratory arrest [Fatal]
  - Prostate cancer metastatic [Fatal]
  - Pulmonary mass [Fatal]
  - Dyspnoea [Not Recovered/Not Resolved]
